FAERS Safety Report 10758030 (Version 2)
Quarter: 2015Q2

REPORT INFORMATION
  Report Type: Spontaneous
  Country: US (occurrence: US)
  Receive Date: 20150203
  Receipt Date: 20150409
  Transmission Date: 20150821
  Serious: No
  Sender: FDA-Public Use
  Company Number: US-009507513-1501USA011554

PATIENT
  Sex: Female

DRUGS (2)
  1. ADVAIR HFA [Concomitant]
     Active Substance: FLUTICASONE PROPIONATE\SALMETEROL XINAFOATE
     Dosage: UNK
  2. DULERA [Suspect]
     Active Substance: FORMOTEROL FUMARATE DIHYDRATE\MOMETASONE FUROATE
     Dosage: ROUTE: ORAL INHALATION
     Route: 055

REACTIONS (3)
  - Peripheral swelling [Recovered/Resolved]
  - Wheezing [Recovered/Resolved]
  - Drug ineffective [Recovered/Resolved]
